FAERS Safety Report 9700196 (Version 1)
Quarter: 2013Q4

REPORT INFORMATION
  Report Type: Spontaneous
  Country: PT (occurrence: None)
  Receive Date: 20131119
  Receipt Date: 20131119
  Transmission Date: 20140711
  Serious: Yes (Life-Threatening)
  Sender: FDA-Public Use
  Company Number: 2013P1020913

PATIENT
  Age: 27 Year
  Sex: Male

DRUGS (4)
  1. EPINEPHRINE [Suspect]
     Indication: ANAESTHESIA
  2. PENTOTHAL [Concomitant]
  3. FENTANYL [Concomitant]
  4. VECURONIUM [Concomitant]

REACTIONS (5)
  - Acute pulmonary oedema [None]
  - Tachycardia [None]
  - Electrocardiogram ST segment depression [None]
  - Troponin I increased [None]
  - Cardiogenic shock [None]
